FAERS Safety Report 5648676-5 (Version None)
Quarter: 2008Q1

REPORT INFORMATION
  Report Type: 
  Country: None (occurrence: None)
  Receive Date: 20080304
  Receipt Date: 20080228
  Transmission Date: 20080703
  Serious: Yes (Hospitalization)
  Sender: FDA-Public Use
  Company Number: B0497598A

PATIENT
  Age: 30 Year
  Sex: Female
  Weight: 55 kg

DRUGS (3)
  1. TOPOTECAN [Suspect]
     Dosage: 2.9MG WEEKLY
     Route: 042
     Dates: start: 20071015, end: 20071117
  2. PACLITAXEL [Suspect]
     Dosage: 115.81MG WEEKLY
     Route: 042
     Dates: start: 20071015, end: 20071117
  3. EPOGEN [Concomitant]
     Dates: start: 20071019

REACTIONS (4)
  - ASTHENIA [None]
  - FATIGUE [None]
  - GENERAL PHYSICAL HEALTH DETERIORATION [None]
  - MALNUTRITION [None]
